FAERS Safety Report 21603874 (Version 3)
Quarter: 2023Q1

REPORT INFORMATION
  Report Type: Report from Study
  Country: CA (occurrence: CA)
  Receive Date: 20221116
  Receipt Date: 20230131
  Transmission Date: 20230417
  Serious: Yes (Hospitalization)
  Sender: FDA-Public Use
  Company Number: CA-JNJFOC-20221126261

PATIENT
  Age: 20 Year
  Sex: Male

DRUGS (3)
  1. TREMFYA [Suspect]
     Active Substance: GUSELKUMAB
     Indication: Psoriasis
     Route: 058
     Dates: start: 20201207
  2. TREMFYA [Suspect]
     Active Substance: GUSELKUMAB
     Route: 058
     Dates: start: 20201207
  3. TREMFYA [Suspect]
     Active Substance: GUSELKUMAB
     Route: 058

REACTIONS (1)
  - Pneumonia [Not Recovered/Not Resolved]

NARRATIVE: CASE EVENT DATE: 20221001
